FAERS Safety Report 7829531-9 (Version None)
Quarter: 2011Q4

REPORT INFORMATION
  Report Type: 
  Country: None (occurrence: None)
  Receive Date: 20111020
  Receipt Date: 20111014
  Transmission Date: 20120403
  Serious: Yes (Hospitalization, Other)
  Sender: FDA-Public Use
  Company Number: FR-MERCK-1006FRA00060

PATIENT
  Age: 61 Year
  Sex: Male
  Weight: 98 kg

DRUGS (4)
  1. JANUMET [Suspect]
     Indication: TYPE 2 DIABETES MELLITUS
     Route: 048
     Dates: start: 20090911, end: 20101102
  2. HYDROCHLOROTHIAZIDE AND VALSARTAN [Concomitant]
     Indication: HYPERTENSION
     Route: 048
     Dates: start: 20051124, end: 20100827
  3. GLIMEPIRIDE [Suspect]
     Indication: TYPE 2 DIABETES MELLITUS
     Route: 048
     Dates: start: 20100315, end: 20100415
  4. ROSUVASTATIN CALCIUM [Concomitant]
     Indication: DYSLIPIDAEMIA
     Route: 048
     Dates: start: 20070406, end: 20100827

REACTIONS (2)
  - ABDOMINAL PAIN UPPER [None]
  - GASTRIC CANCER [None]
